FAERS Safety Report 4339765-6 (Version None)
Quarter: 2004Q2

REPORT INFORMATION
  Report Type: 
  Country: None (occurrence: None)
  Receive Date: 20040416
  Receipt Date: 20040412
  Transmission Date: 20050107
  Serious: Yes (Death, Other)
  Sender: FDA-Public Use
  Company Number: PHBS2004BR04803

PATIENT
  Age: 60 Year
  Sex: Male

DRUGS (1)
  1. VOLTAREN [Suspect]
     Indication: ARTHRITIS

REACTIONS (4)
  - CARCINOMA [None]
  - GASTRIC ULCER [None]
  - METASTASES TO LIVER [None]
  - METASTASES TO SPLEEN [None]
